FAERS Safety Report 11294535 (Version 1)
Quarter: 2015Q2

REPORT INFORMATION
  Report Type: Spontaneous
  Country: US (occurrence: None)
  Receive Date: 20150623
  Receipt Date: 20150623
  Transmission Date: 20150821
  Serious: Yes (Other)
  Sender: FDA-Public Use
  Company Number: RB-73260-2015

PATIENT
  Age: 82 Year
  Sex: Female

DRUGS (7)
  1. WARFARIN [Concomitant]
     Active Substance: WARFARIN
  2. VITAMIN D [Concomitant]
     Active Substance: CHOLECALCIFEROL
  3. METOPROLOL [Concomitant]
     Active Substance: METOPROLOL
  4. DEXTROMETHORPHAN W/GUAIFENESIN 1200 MG (RB (RECKITT BENCKISER)) [Suspect]
     Active Substance: DEXTROMETHORPHAN\GUAIFENESIN
     Indication: COUGH
     Dates: start: 20150205
  5. DEXTROMETHORPHAN W/GUAIFENESIN 1200 MG (RB (RECKITT BENCKISER)) [Suspect]
     Active Substance: DEXTROMETHORPHAN\GUAIFENESIN
     Indication: PRODUCTIVE COUGH
     Dates: start: 20150205
  6. RAMIPRIL. [Concomitant]
     Active Substance: RAMIPRIL
  7. BUMEX [Concomitant]
     Active Substance: BUMETANIDE

REACTIONS (6)
  - Asthenia [None]
  - Hallucination [None]
  - Loss of consciousness [None]
  - Dizziness [None]
  - Vomiting [None]
  - Eye disorder [None]

NARRATIVE: CASE EVENT DATE: 20150205
